FAERS Safety Report 9935349 (Version 2)
Quarter: 2014Q3

REPORT INFORMATION
  Report Type: Spontaneous
  Country: US (occurrence: US)
  Receive Date: 20140228
  Receipt Date: 20140714
  Transmission Date: 20150326
  Serious: Yes (Other)
  Sender: FDA-Public Use
  Company Number: US-PFIZER INC-2014055299

PATIENT
  Age: 41 Year
  Sex: Male

DRUGS (1)
  1. SUTENT [Suspect]
     Active Substance: SUNITINIB MALATE
     Indication: ONCOLOGIC COMPLICATION
     Dosage: 50 MG, CYCLIC DAILY 28DAYS ON 14DAYS OFF
     Route: 048
     Dates: start: 20131216, end: 20140707

REACTIONS (3)
  - Blood pressure increased [Unknown]
  - Insomnia [Unknown]
  - Post procedural complication [Unknown]

NARRATIVE: CASE EVENT DATE: 20140221
